FAERS Safety Report 18306108 (Version 2)
Quarter: 2020Q3

REPORT INFORMATION
  Report Type: Spontaneous
  Country: US (occurrence: US)
  Receive Date: 20200923
  Receipt Date: 20200925
  Transmission Date: 20201103
  Serious: Yes (Hospitalization)
  Sender: FDA-Public Use
  Company Number: US-ASTRAZENECA-2020SF21108

PATIENT
  Age: 55 Year
  Sex: Male

DRUGS (1)
  1. FARXIGA [Suspect]
     Active Substance: DAPAGLIFLOZIN PROPANEDIOL
     Indication: DIABETES MELLITUS
     Dosage: UNKNOWN
     Route: 048

REACTIONS (3)
  - Blood triglycerides increased [Unknown]
  - Coronary artery disease [Unknown]
  - Diabetic ketoacidosis [Recovered/Resolved]
